FAERS Safety Report 26112591 (Version 1)
Quarter: 2025Q4

REPORT INFORMATION
  Report Type: Spontaneous
  Country: CN (occurrence: CN)
  Receive Date: 20251202
  Receipt Date: 20251202
  Transmission Date: 20260117
  Serious: Yes (Hospitalization, Other)
  Sender: MYLAN
  Company Number: CN-MYLANLABS-2025M1101430

PATIENT
  Age: 13 Year
  Sex: Female
  Weight: 39 kg

DRUGS (2)
  1. ZOLOFT [Suspect]
     Active Substance: SERTRALINE HYDROCHLORIDE
     Indication: Completed suicide
     Dosage: 14 DOSAGE FORM, QD
     Dates: start: 20251113, end: 20251113
  2. ALPRAZOLAM [Suspect]
     Active Substance: ALPRAZOLAM
     Indication: Completed suicide
     Dosage: 12.5 DOSAGE FORM, QD
     Dates: start: 20251113, end: 20251113

REACTIONS (2)
  - Drug level abnormal [Recovering/Resolving]
  - Overdose [Recovering/Resolving]

NARRATIVE: CASE EVENT DATE: 20251113
